FAERS Safety Report 17483537 (Version 1)
Quarter: 2020Q1

REPORT INFORMATION
  Report Type: Spontaneous
  Country: US (occurrence: US)
  Receive Date: 20200302
  Receipt Date: 20200302
  Transmission Date: 20200409
  Serious: Yes (Other)
  Sender: FDA-Public Use
  Company Number: US-BAYER-2020-036279

PATIENT
  Age: 81 Year
  Sex: Female

DRUGS (3)
  1. Q10 [Concomitant]
     Active Substance: UBIDECARENONE
     Dosage: UNK
  2. ONE-A-DAY [MINERALS NOS;VITAMINS NOS] [Concomitant]
     Dosage: UNK
     Route: 065
  3. MIRALAX [Suspect]
     Active Substance: POLYETHYLENE GLYCOL 3350
     Indication: GASTROINTESTINAL DISORDER
     Dosage: UNK
     Route: 048

REACTIONS (2)
  - Haemorrhage [Unknown]
  - Pruritus [Unknown]
